FAERS Safety Report 9780009 (Version 1)
Quarter: 2013Q4

REPORT INFORMATION
  Report Type: Spontaneous
  Country: US (occurrence: US)
  Receive Date: 20131223
  Receipt Date: 20131223
  Transmission Date: 20140711
  Serious: Yes (Other)
  Sender: FDA-Public Use
  Company Number: US-PFIZER INC-2013366465

PATIENT
  Age: 53 Year
  Sex: Male
  Weight: 99.77 kg

DRUGS (1)
  1. LYRICA [Suspect]
     Dosage: UNK

REACTIONS (6)
  - Diabetes mellitus [Unknown]
  - Blood glucose increased [Unknown]
  - Hypertension [Unknown]
  - Eye disorder [Unknown]
  - Cyanopsia [Unknown]
  - Visual brightness [Unknown]
